FAERS Safety Report 24542849 (Version 1)
Quarter: 2024Q4

REPORT INFORMATION
  Report Type: Spontaneous
  Country: US (occurrence: US)
  Receive Date: 20241024
  Receipt Date: 20241024
  Transmission Date: 20250114
  Serious: No
  Sender: GLENMARK
  Company Number: US-GLENMARK PHARMACEUTICALS-2024GMK092886

PATIENT

DRUGS (1)
  1. RYALTRIS [Suspect]
     Active Substance: MOMETASONE FUROATE MONOHYDRATE\OLOPATADINE HYDROCHLORIDE
     Indication: Product used for unknown indication
     Dosage: 1 DOSAGE FORM, BID (USE 1 SPRAY IN EACH NOSTRIL TWICE A DAY. RINSE MOUTH AFTER USING)
     Route: 045
     Dates: start: 20240702

REACTIONS (2)
  - Drug hypersensitivity [Unknown]
  - Product use issue [Unknown]
